FAERS Safety Report 5717742-8 (Version None)
Quarter: 2008Q2

REPORT INFORMATION
  Report Type: 
  Country: None (occurrence: None)
  Receive Date: 20080425
  Receipt Date: 20080422
  Transmission Date: 20081010
  Serious: Yes (Hospitalization)
  Sender: FDA-Public Use
  Company Number: FR-ASTRAZENECA-2008CG00629

PATIENT
  Age: 77 Year
  Sex: Male

DRUGS (11)
  1. OMEPRAZOLE [Suspect]
     Route: 048
     Dates: start: 20060701
  2. MIMPARA [Suspect]
     Route: 048
     Dates: start: 20060701
  3. ASPEGIC 1000 [Concomitant]
     Route: 048
     Dates: start: 20021001
  4. PERINDOPRIL ERBUMINE [Concomitant]
     Dates: end: 20060101
  5. RENAGEL [Concomitant]
     Dates: end: 20060101
  6. MOTILIUM [Concomitant]
     Dates: start: 20060101
  7. ORBENINE [Concomitant]
     Dates: end: 20060101
  8. BRISTOPEN [Concomitant]
     Dates: end: 20060101
  9. OFLOCET [Concomitant]
     Dates: end: 20060101
  10. PARACETAMOL [Concomitant]
     Dates: end: 20060101
  11. POLARAMINE [Concomitant]
     Dates: end: 20060101

REACTIONS (3)
  - DERMATITIS EXFOLIATIVE [None]
  - EOSINOPHILIA [None]
  - LYMPHOPENIA [None]
